FAERS Safety Report 4836694-6 (Version None)
Quarter: 2005Q4

REPORT INFORMATION
  Report Type: 
  Country: None (occurrence: None)
  Receive Date: 20051123
  Receipt Date: 20050902
  Transmission Date: 20060501
  Serious: Yes (Other)
  Sender: FDA-Public Use
  Company Number: JP-MERCK-0509USA00319

PATIENT
  Age: 56 Year
  Sex: Male
  Weight: 52 kg

DRUGS (7)
  1. FOSAMAX [Suspect]
     Indication: OSTEOPOROSIS
     Route: 048
     Dates: start: 20050813, end: 20050819
  2. FOSAMAX [Suspect]
     Route: 048
     Dates: start: 20050830, end: 20050831
  3. POTASSIUM CITRATE [Concomitant]
     Indication: HYPERURICAEMIA
     Route: 048
     Dates: start: 20050810, end: 20050819
  4. PREDONINE [Concomitant]
     Indication: MULTIPLE MYELOMA
     Route: 048
     Dates: start: 20050813, end: 20050816
  5. ALKERAN [Concomitant]
     Indication: MULTIPLE MYELOMA
     Route: 048
     Dates: start: 20050813, end: 20050816
  6. PARIET [Concomitant]
     Indication: GASTRIC ULCER
     Route: 048
     Dates: start: 20050810
  7. ALLOPURINOL [Concomitant]
     Indication: HYPERURICAEMIA
     Route: 048
     Dates: start: 20050810

REACTIONS (5)
  - GASTRIC ULCER [None]
  - GENERALISED ERYTHEMA [None]
  - PYREXIA [None]
  - STOMATITIS [None]
  - TOXIC SKIN ERUPTION [None]
